FAERS Safety Report 5426195-9 (Version None)
Quarter: 2007Q3

REPORT INFORMATION
  Report Type: 
  Country: None (occurrence: None)
  Receive Date: 20070827
  Receipt Date: 20070820
  Transmission Date: 20080115
  Serious: Yes (Other)
  Sender: FDA-Public Use
  Company Number: A0676434A

PATIENT
  Age: 15 Year
  Sex: Female

DRUGS (2)
  1. PAXIL [Suspect]
     Indication: ANXIETY
     Route: 048
     Dates: start: 20021114, end: 20031027
  2. PAROXETINE HYDROCHLORIDE [Suspect]
     Indication: DEPRESSION
     Dosage: 20MG UNKNOWN
     Route: 048

REACTIONS (9)
  - ANGER [None]
  - ANXIETY [None]
  - ASTHENIA [None]
  - DEPRESSION [None]
  - EMOTIONAL DISORDER [None]
  - FEELING OF DESPAIR [None]
  - FEELINGS OF WORTHLESSNESS [None]
  - INSOMNIA [None]
  - SUICIDE ATTEMPT [None]
